FAERS Safety Report 7722220-0 (Version None)
Quarter: 2011Q3

REPORT INFORMATION
  Report Type: 
  Country: None (occurrence: None)
  Receive Date: 20110831
  Receipt Date: 20110824
  Transmission Date: 20111222
  Serious: Yes (Other)
  Sender: FDA-Public Use
  Company Number: US-PFIZER INC-2011195337

PATIENT
  Sex: Female
  Weight: 63.5 kg

DRUGS (8)
  1. HYDROCHLOROTHIAZIDE AND LISINOPRIL [Suspect]
     Indication: HYPERTENSION
     Dosage: UNK
     Dates: end: 20110101
  2. METFORMIN [Concomitant]
     Indication: BLOOD GLUCOSE ABNORMAL
     Dosage: UNK
  3. HYDROCHLOROTHIAZIDE AND LISINOPRIL [Suspect]
     Dosage: 10/12.5 MG, DAILY
     Route: 048
  4. METOPROLOL [Concomitant]
     Indication: HYPERTENSION
     Dosage: DAILY
  5. DONEPEZIL [Concomitant]
     Indication: VASCULAR DEMENTIA
     Dosage: DAILY
  6. NORVASC [Suspect]
     Indication: HYPERTENSION
     Dosage: 5 MG, DAILY
     Route: 048
     Dates: start: 20110809
  7. NORVASC [Suspect]
     Indication: BLOOD TEST ABNORMAL
  8. NAMENDA [Concomitant]
     Indication: VASCULAR DEMENTIA
     Dosage: UNK
     Route: 048

REACTIONS (5)
  - FATIGUE [None]
  - FEELING ABNORMAL [None]
  - GAIT DISTURBANCE [None]
  - SOMNOLENCE [None]
  - HEMIPARESIS [None]
